FAERS Safety Report 6045580-8 (Version None)
Quarter: 2009Q1

REPORT INFORMATION
  Report Type: 
  Country: None (occurrence: None)
  Receive Date: 20090121
  Receipt Date: 20090113
  Transmission Date: 20090719
  Serious: Yes (Hospitalization)
  Sender: FDA-Public Use
  Company Number: US-ASTRAZENECA-2009UW01051

PATIENT
  Age: 96 Year
  Sex: Female
  Weight: 43.1 kg

DRUGS (25)
  1. SEROQUEL [Suspect]
     Indication: HALLUCINATION, VISUAL
     Route: 048
     Dates: start: 20080801
  2. SEROQUEL [Suspect]
     Indication: MANIA
     Route: 048
     Dates: start: 20080801
  3. SEROQUEL [Suspect]
     Indication: DEMENTIA
     Route: 048
     Dates: start: 20080801
  4. SEROQUEL [Suspect]
     Indication: CRYING
     Route: 048
     Dates: start: 20080801
  5. SEROQUEL [Suspect]
     Dosage: 50 MG DAILY (12.5, 12.5 AND 25 MG)
     Route: 048
  6. SEROQUEL [Suspect]
     Dosage: 50 MG DAILY (12.5, 12.5 AND 25 MG)
     Route: 048
  7. SEROQUEL [Suspect]
     Dosage: 50 MG DAILY (12.5, 12.5 AND 25 MG)
     Route: 048
  8. SEROQUEL [Suspect]
     Dosage: 50 MG DAILY (12.5, 12.5 AND 25 MG)
     Route: 048
  9. SEROQUEL [Suspect]
     Route: 048
     Dates: start: 20081101
  10. SEROQUEL [Suspect]
     Route: 048
     Dates: start: 20081101
  11. SEROQUEL [Suspect]
     Route: 048
     Dates: start: 20081101
  12. SEROQUEL [Suspect]
     Route: 048
     Dates: start: 20081101
  13. SEROQUEL [Suspect]
     Dosage: 100 MG (25 MG, 25 MG, 50 MG)
     Route: 048
  14. SEROQUEL [Suspect]
     Dosage: 100 MG (25 MG, 25 MG, 50 MG)
     Route: 048
  15. SEROQUEL [Suspect]
     Dosage: 100 MG (25 MG, 25 MG, 50 MG)
     Route: 048
  16. SEROQUEL [Suspect]
     Dosage: 100 MG (25 MG, 25 MG, 50 MG)
     Route: 048
  17. SEROQUEL [Suspect]
     Route: 048
     Dates: start: 20081201
  18. SEROQUEL [Suspect]
     Route: 048
     Dates: start: 20081201
  19. SEROQUEL [Suspect]
     Route: 048
     Dates: start: 20081201
  20. SEROQUEL [Suspect]
     Route: 048
     Dates: start: 20081201
  21. XANAX [Concomitant]
     Dates: end: 20080801
  22. PROCARDIA XL [Concomitant]
     Dosage: 60 MG
  23. COLACE [Concomitant]
  24. INHALER [Concomitant]
  25. LUMIGAN [Concomitant]
     Indication: GLAUCOMA
     Route: 031

REACTIONS (6)
  - ABNORMAL BEHAVIOUR [None]
  - HALLUCINATION, VISUAL [None]
  - HOSPITALISATION [None]
  - ILL-DEFINED DISORDER [None]
  - INSOMNIA [None]
  - THINKING ABNORMAL [None]
